FAERS Safety Report 7430374-9 (Version None)
Quarter: 2011Q2

REPORT INFORMATION
  Report Type: 
  Country: None (occurrence: None)
  Receive Date: 20110421
  Receipt Date: 20100604
  Transmission Date: 20111010
  Serious: No
  Sender: FDA-Public Use
  Company Number: US-ASTRAZENECA-2010SE25895

PATIENT
  Age: 28721 Day
  Sex: Female
  Weight: 59 kg

DRUGS (1)
  1. METOPROLOL SUCCINATE [Suspect]
     Indication: HYPERTENSION
     Route: 048
     Dates: start: 20100528

REACTIONS (5)
  - HYPERSENSITIVITY [None]
  - CHEST DISCOMFORT [None]
  - DYSURIA [None]
  - SWOLLEN TONGUE [None]
  - PIGMENTATION DISORDER [None]
